FAERS Safety Report 10265362 (Version 1)
Quarter: 2014Q2

REPORT INFORMATION
  Report Type: Spontaneous
  Country: JP (occurrence: None)
  Receive Date: 20140624
  Receipt Date: 20140624
  Transmission Date: 20141212
  Serious: Yes (Other)
  Sender: FDA-Public Use
  Company Number: SYM-2014-22023

PATIENT
  Age: 60 Year
  Sex: Male

DRUGS (1)
  1. VISUDYNE [Suspect]
     Indication: CHORIORETINOPATHY

REACTIONS (4)
  - Visual acuity reduced [None]
  - Eye burns [None]
  - Corneal scar [None]
  - Astigmatism [None]
